FAERS Safety Report 8138447-2 (Version None)
Quarter: 2012Q1

REPORT INFORMATION
  Report Type: 
  Country: None (occurrence: None)
  Receive Date: 20120213
  Receipt Date: 20120203
  Transmission Date: 20120608
  Serious: Yes (Death)
  Sender: FDA-Public Use
  Company Number: 216742

PATIENT
  Age: 54 Year
  Sex: Male

DRUGS (1)
  1. INNOHEP [Suspect]
     Indication: PRODUCT USED FOR UNKNOWN INDICATION
     Dosage: (14000 IU, 10 D) SUBCUTANEOUS
     Route: 058

REACTIONS (3)
  - COMPLETED SUICIDE [None]
  - OVERDOSE [None]
  - HAEMORRHAGE [None]
